FAERS Safety Report 24059478 (Version 3)
Quarter: 2024Q3

REPORT INFORMATION
  Report Type: Spontaneous
  Country: ES (occurrence: ES)
  Receive Date: 20240708
  Receipt Date: 20240719
  Transmission Date: 20241017
  Serious: Yes (Other)
  Sender: NOVARTIS
  Company Number: ES-002147023-NVSC2024ES120907

PATIENT
  Age: 43 Year
  Sex: Female

DRUGS (1)
  1. COSENTYX [Suspect]
     Active Substance: SECUKINUMAB
     Indication: Hidradenitis
     Dosage: 300 MG, EVERY 15  DAYS
     Route: 058
     Dates: start: 20240129

REACTIONS (3)
  - Hypersensitivity [Not Recovered/Not Resolved]
  - Injection site reaction [Unknown]
  - Skin oedema [Unknown]

NARRATIVE: CASE EVENT DATE: 20240129
